FAERS Safety Report 4676400-1 (Version None)
Quarter: 2005Q2

REPORT INFORMATION
  Report Type: 
  Country: None (occurrence: None)
  Receive Date: 20050527
  Receipt Date: 20050304
  Transmission Date: 20051028
  Serious: Yes (Hospitalization, Other)
  Sender: FDA-Public Use
  Company Number: US-GLAXOSMITHKLINE-A0548387A

PATIENT
  Age: 11 Year
  Sex: Male
  Weight: 40.5 kg

DRUGS (2)
  1. WELLBUTRIN XL [Suspect]
     Indication: POST-TRAUMATIC STRESS DISORDER
     Dosage: 300MG PER DAY
     Route: 048
     Dates: start: 20050101, end: 20050203
  2. BENADRYL [Concomitant]

REACTIONS (1)
  - GRAND MAL CONVULSION [None]
